FAERS Safety Report 7330044-1 (Version None)
Quarter: 2011Q1

REPORT INFORMATION
  Report Type: 
  Country: None (occurrence: None)
  Receive Date: 20110303
  Receipt Date: 20110216
  Transmission Date: 20110831
  Serious: Yes (Other)
  Sender: FDA-Public Use
  Company Number: US-BAYER-201024059NA

PATIENT
  Sex: Female
  Weight: 73.923 kg

DRUGS (3)
  1. YASMIN [Suspect]
     Indication: ORAL CONTRACEPTION
     Route: 048
     Dates: start: 20040101, end: 20090501
  2. LEXAPRO [Concomitant]
     Indication: HEADACHE
  3. OCELLA [Suspect]

REACTIONS (7)
  - CHOLECYSTITIS [None]
  - GALLBLADDER CHOLESTEROLOSIS [None]
  - ABDOMINAL DISCOMFORT [None]
  - CHOLELITHIASIS [None]
  - ABDOMINAL PAIN UPPER [None]
  - ABDOMINAL PAIN [None]
  - HYPOKALAEMIA [None]
